FAERS Safety Report 7275513-8 (Version None)
Quarter: 2011Q1

REPORT INFORMATION
  Report Type: 
  Country: None (occurrence: None)
  Receive Date: 20110204
  Receipt Date: 20110131
  Transmission Date: 20110831
  Serious: Yes (Death, Life-Threatening, Hospitalization)
  Sender: FDA-Public Use
  Company Number: ZA-BRISTOL-MYERS SQUIBB COMPANY-15506074

PATIENT
  Age: 78 Year
  Sex: Male
  Weight: 76 kg

DRUGS (3)
  1. FLUOROURACIL [Suspect]
     Indication: COLON CANCER
     Dates: start: 20101124, end: 20110112
  2. ERBITUX [Suspect]
     Indication: COLON CANCER METASTATIC
     Dosage: RESTARTED + LAST DOSE ON 19JAN11.11JAN2011(RECENT INF) 250MG/M2 24NOV10-19JAN11
     Dates: start: 20101124
  3. ELOXATIN [Suspect]
     Indication: COLON CANCER
     Dates: start: 20101124, end: 20110111

REACTIONS (2)
  - SEPSIS [None]
  - DEHYDRATION [None]
